FAERS Safety Report 7631363-1 (Version None)
Quarter: 2011Q3

REPORT INFORMATION
  Report Type: 
  Country: None (occurrence: None)
  Receive Date: 20110725
  Receipt Date: 20110715
  Transmission Date: 20111222
  Serious: Yes (Hospitalization, Other)
  Sender: FDA-Public Use
  Company Number: US-BAYER-201029713NA

PATIENT
  Age: 36 Year
  Sex: Female
  Weight: 88.435 kg

DRUGS (7)
  1. NAPROXEN [Concomitant]
     Dosage: UNK
     Dates: start: 20021101, end: 20090801
  2. YAZ [Suspect]
     Indication: CONTRACEPTION
     Dosage: UNK
     Dates: start: 20070901, end: 20090901
  3. SERTRALINE HYDROCHLORIDE [Concomitant]
     Indication: DEPRESSION
     Dosage: UNK UNK, QD
     Dates: start: 20070701
  4. EPIDRIN [Concomitant]
     Dosage: UNK
     Dates: start: 20090716
  5. PROPRANOLOL [Concomitant]
     Indication: HEART RATE IRREGULAR
     Dosage: UNK
     Dates: start: 20080901, end: 20091001
  6. HYDROCODONE BITARTRATE AND ACETAMINOPHEN [Concomitant]
     Dosage: UNK
     Dates: start: 20090814
  7. VERAPAMIL [Concomitant]
     Indication: BLOOD PRESSURE ABNORMAL

REACTIONS (1)
  - PULMONARY EMBOLISM [None]
